FAERS Safety Report 17617781 (Version 2)
Quarter: 2020Q2

REPORT INFORMATION
  Report Type: Spontaneous
  Country: US (occurrence: US)
  Receive Date: 20200402
  Receipt Date: 20200413
  Transmission Date: 20200713
  Serious: Yes (Other)
  Sender: FDA-Public Use
  Company Number: US-INTERNATIONAL MEDICATION SYSTEMS, LIMITED-2082259

PATIENT
  Age: 34 Year
  Sex: Male

DRUGS (2)
  1. LIDOCAINE HYDROCHLORIDE. [Suspect]
     Active Substance: LIDOCAINE HYDROCHLORIDE
     Indication: ANAESTHESIA
     Route: 061
     Dates: start: 20190924, end: 20190924
  2. LIDOCAINE HYDROCHLORIDE. [Suspect]
     Active Substance: LIDOCAINE HYDROCHLORIDE
     Indication: PROPHYLAXIS
     Route: 061
     Dates: start: 20190924, end: 20190924

REACTIONS (2)
  - Foreign body [Recovered/Resolved]
  - Removal of foreign body [Recovered/Resolved]

NARRATIVE: CASE EVENT DATE: 20190924
